FAERS Safety Report 9931625 (Version 1)
Quarter: 2014Q1

REPORT INFORMATION
  Report Type: Spontaneous
  Country: US (occurrence: None)
  Receive Date: 20140227
  Receipt Date: 20140227
  Transmission Date: 20141002
  Serious: Yes (Hospitalization)
  Sender: FDA-Public Use
  Company Number: None

PATIENT
  Age: 60 Year
  Sex: Male
  Weight: 150.7 kg

DRUGS (2)
  1. CARBOPLATIN [Suspect]
  2. PACLITAXEL (TAXOL) [Suspect]

REACTIONS (29)
  - Musculoskeletal pain [None]
  - Local swelling [None]
  - Inadequate analgesia [None]
  - Fall [None]
  - Injury [None]
  - Arthralgia [None]
  - Arthralgia [None]
  - Platelet count abnormal [None]
  - Infective myositis [None]
  - Myositis [None]
  - Muscle disorder [None]
  - Infarction [None]
  - Muscle haemorrhage [None]
  - Muscle abscess [None]
  - Chills [None]
  - Hyperhidrosis [None]
  - Fatigue [None]
  - Decreased appetite [None]
  - Nausea [None]
  - Vomiting [None]
  - Body temperature increased [None]
  - White blood cell count increased [None]
  - Sepsis [None]
  - Oesophageal carcinoma [None]
  - Malignant neoplasm progression [None]
  - Metastases to abdominal cavity [None]
  - Hepatic lesion [None]
  - Lymphadenopathy [None]
  - Metastases to muscle [None]
